FAERS Safety Report 23266312 (Version 2)
Quarter: 2023Q4

REPORT INFORMATION
  Report Type: Spontaneous
  Country: CL (occurrence: CL)
  Receive Date: 20231206
  Receipt Date: 20231210
  Transmission Date: 20240110
  Serious: Yes (Other)
  Sender: FDA-Public Use
  Company Number: CL-002147023-NVSC2023CL256753

PATIENT
  Sex: Female

DRUGS (1)
  1. COSENTYX [Suspect]
     Active Substance: SECUKINUMAB
     Indication: Product used for unknown indication
     Dosage: UNK, (MANUFACTURING DATE: NOV 2022)
     Route: 065

REACTIONS (6)
  - Acute myocardial infarction [Unknown]
  - Hypothyroidism [Unknown]
  - Hypertension [Unknown]
  - Skin mass [Unknown]
  - Hot flush [Unknown]
  - Erythema [Unknown]
